FAERS Safety Report 9604151 (Version 1)
Quarter: 2013Q4

REPORT INFORMATION
  Report Type: Spontaneous
  Country: FR (occurrence: FR)
  Receive Date: 20131008
  Receipt Date: 20131008
  Transmission Date: 20140711
  Serious: Yes (Hospitalization)
  Sender: FDA-Public Use
  Company Number: FR-JNJFOC-20131001673

PATIENT
  Age: 82 Year
  Sex: Female

DRUGS (10)
  1. DUROGESIC [Suspect]
     Indication: POST-TRAUMATIC PAIN
     Route: 062
     Dates: start: 20121008, end: 20121019
  2. DAFALGAN [Concomitant]
     Route: 065
  3. EUPANTOL [Concomitant]
     Route: 065
  4. LEVOTHYROX [Concomitant]
     Route: 065
  5. PERINDOPRIL [Concomitant]
     Route: 065
  6. SEROPLEX [Concomitant]
     Route: 065
  7. TAHOR [Concomitant]
     Route: 065
  8. TOPALGIC [Concomitant]
     Route: 065
     Dates: start: 201206
  9. TRANSIPEG [Concomitant]
     Route: 065
  10. FLUINDIONE [Concomitant]
     Route: 065

REACTIONS (3)
  - Autonomic nervous system imbalance [Recovered/Resolved]
  - Confusional state [Recovered/Resolved]
  - Apathy [Recovered/Resolved]
